FAERS Safety Report 11361470 (Version 3)
Quarter: 2015Q4

REPORT INFORMATION
  Report Type: Spontaneous
  Country: JP (occurrence: JP)
  Receive Date: 20150810
  Receipt Date: 20151216
  Transmission Date: 20160304
  Serious: Yes (Hospitalization, Other)
  Sender: FDA-Public Use
  Company Number: JP-GLAXOSMITHKLINE-JP2015JPN111883

PATIENT
  Age: 37 Year
  Sex: Female
  Weight: 52 kg

DRUGS (4)
  1. LANDSEN [Suspect]
     Active Substance: CLONAZEPAM
     Indication: EPILEPSY
     Dosage: 1 MG, BID
     Route: 048
     Dates: start: 19980729
  2. LAMICTAL [Suspect]
     Active Substance: LAMOTRIGINE
     Indication: EPILEPSY
     Dosage: 25 MG, QOD
     Route: 048
     Dates: start: 20150526, end: 20150607
  3. LANDSEN [Suspect]
     Active Substance: CLONAZEPAM
     Dosage: 1 MG, BID
     Route: 048
     Dates: start: 20150523, end: 20150605
  4. LANDSEN [Suspect]
     Active Substance: CLONAZEPAM
     Indication: CONVULSION PROPHYLAXIS
     Dosage: 1.5 MG, BID
     Route: 048
     Dates: start: 20141123, end: 20150523

REACTIONS (12)
  - Lymphadenopathy [Unknown]
  - Skin exfoliation [Unknown]
  - Stevens-Johnson syndrome [Recovering/Resolving]
  - Hypoaesthesia [Unknown]
  - Ocular hyperaemia [Unknown]
  - Pyrexia [Recovered/Resolved]
  - Liver disorder [Unknown]
  - Neuropathy peripheral [Recovered/Resolved]
  - Erythema [Unknown]
  - White blood cell count decreased [Unknown]
  - Erythema of eyelid [Unknown]
  - Rash generalised [Recovered/Resolved]

NARRATIVE: CASE EVENT DATE: 20150605
